FAERS Safety Report 26116345 (Version 1)
Quarter: 2025Q4

REPORT INFORMATION
  Report Type: Spontaneous
  Country: US (occurrence: US)
  Receive Date: 20251203
  Receipt Date: 20251203
  Transmission Date: 20260117
  Serious: Yes (Hospitalization)
  Sender: BAXTER
  Company Number: US-MLMSERVICE-20251119-PI718285-00108-1

PATIENT
  Age: 44 Year
  Sex: Female

DRUGS (13)
  1. FLUCONAZOLE [Interacting]
     Active Substance: FLUCONAZOLE
     Route: 065
  2. CLOZAPINE [Interacting]
     Active Substance: CLOZAPINE
     Indication: Schizoaffective disorder bipolar type
     Dosage: 500 MG, QD
     Route: 065
  3. CLOZAPINE [Interacting]
     Active Substance: CLOZAPINE
     Dosage: REDUCTION OF CLOZAPINE TO 125 MG DAILY
     Route: 065
  4. CLOZAPINE [Interacting]
     Active Substance: CLOZAPINE
     Dosage: CLOZAPINE WAS RESTARTED AT 25 MG QHS AND SLOWLY RE-TITRATED TO 300 MG TOTAL DAILY
     Route: 065
  5. CLOZAPINE [Interacting]
     Active Substance: CLOZAPINE
     Dosage: CLOZAPINE WAS RESTARTED AT 25 MG QHS AND SLOWLY RE-TITRATED TO 300 MG TOTAL DAILY
     Route: 065
  6. PROPRANOLOL [Interacting]
     Active Substance: PROPRANOLOL HYDROCHLORIDE
     Indication: Schizoaffective disorder bipolar type
     Dosage: 60 MG, QD (HOME MEDICATION)
     Route: 065
  7. PROPRANOLOL [Interacting]
     Active Substance: PROPRANOLOL HYDROCHLORIDE
     Dosage: RE-INITIATION OF PROPRANOLOL
     Route: 065
  8. PALIPERIDONE PALMITATE [Concomitant]
     Active Substance: PALIPERIDONE PALMITATE
     Indication: Schizoaffective disorder bipolar type
     Dosage: LAI
     Route: 065
  9. DULOXETINE [Concomitant]
     Active Substance: DULOXETINE
     Indication: Schizoaffective disorder bipolar type
  10. LORAZEPAM [Concomitant]
     Active Substance: LORAZEPAM
     Indication: Schizoaffective disorder bipolar type
     Dosage: 1 MG, TID
     Route: 065
  11. LUMATEPERONE [Concomitant]
     Active Substance: LUMATEPERONE
     Indication: Schizoaffective disorder bipolar type
     Route: 065
  12. VENLAFAXINE [Concomitant]
     Active Substance: VENLAFAXINE HYDROCHLORIDE
     Indication: Schizoaffective disorder bipolar type
     Route: 065
  13. BENZTROPINE [Concomitant]
     Active Substance: BENZTROPINE
     Indication: Schizoaffective disorder bipolar type
     Dosage: 0.5 MG, BID
     Route: 065

REACTIONS (3)
  - Drug interaction [Unknown]
  - Toxicity to various agents [Unknown]
  - Antipsychotic drug level increased [Unknown]
